FAERS Safety Report 26127641 (Version 2)
Quarter: 2025Q4

REPORT INFORMATION
  Report Type: Spontaneous
  Country: CA (occurrence: CA)
  Receive Date: 20251206
  Receipt Date: 20251208
  Transmission Date: 20260117
  Serious: Yes (Other)
  Sender: AUROBINDO
  Company Number: CA-AUROBINDO-AUR-APL-2025-060938

PATIENT
  Age: 26 Year
  Sex: Female

DRUGS (7)
  1. SUNITINIB [Suspect]
     Active Substance: SUNITINIB
     Indication: Product used for unknown indication
     Route: 065
  2. AFINITOR [Suspect]
     Active Substance: EVEROLIMUS
     Indication: Paraganglion neoplasm malignant
     Dosage: UNK
     Route: 065
  3. CYCLOPHOSPHAMIDE [Suspect]
     Active Substance: CYCLOPHOSPHAMIDE
     Indication: Paraganglion neoplasm malignant
     Dosage: 2000 MILLIGRAM
     Route: 065
  4. TEMODAL [Suspect]
     Active Substance: TEMOZOLOMIDE
     Indication: Paraganglion neoplasm malignant
     Route: 065
  5. TOPOTECAN HYDROCHLORIDE [Suspect]
     Active Substance: TOPOTECAN HYDROCHLORIDE
     Indication: Paraganglion neoplasm malignant
     Route: 065
  6. MESNA [Suspect]
     Active Substance: MESNA
     Indication: Phaeochromocytoma malignant
  7. VANDETANIB [Suspect]
     Active Substance: VANDETANIB
     Indication: Phaeochromocytoma malignant
     Dosage: UNK
     Route: 065

REACTIONS (8)
  - Headache [Recovering/Resolving]
  - Insomnia [Recovering/Resolving]
  - Metastases to bone [Recovering/Resolving]
  - Metastases to central nervous system [Recovering/Resolving]
  - Metastases to liver [Recovering/Resolving]
  - Pancytopenia [Recovering/Resolving]
  - Off label use [Recovering/Resolving]
  - Product use in unapproved indication [Recovering/Resolving]
